FAERS Safety Report 8304418-6 (Version None)
Quarter: 2012Q2

REPORT INFORMATION
  Report Type: 
  Country: None (occurrence: None)
  Receive Date: 20120423
  Receipt Date: 20120410
  Transmission Date: 20120825
  Serious: Yes (Hospitalization, Other)
  Sender: FDA-Public Use
  Company Number: US-SANOFI-AVENTIS-2012SA016311

PATIENT
  Age: 62 Year
  Sex: Female
  Weight: 105 kg

DRUGS (11)
  1. GLIMEPIRIDE [Concomitant]
  2. METFORMIN HCL [Concomitant]
  3. METOPROLOL TARTRATE [Concomitant]
  4. POTASSIUM CHLORIDE [Concomitant]
  5. AMLODIPINE [Concomitant]
  6. ANTIHYPERTENSIVES [Concomitant]
  7. MULTAQ [Suspect]
     Route: 048
  8. HYDROCHLOROTHIAZIDE [Concomitant]
     Indication: SWELLING
  9. LANTUS [Concomitant]
     Dosage: DOSE:23 UNIT(S)
  10. MULTAQ [Suspect]
     Indication: ATRIAL FIBRILLATION
     Route: 048
     Dates: start: 20100101
  11. LASIX [Concomitant]
     Indication: SWELLING

REACTIONS (7)
  - PNEUMONIA [None]
  - ATRIAL FIBRILLATION [None]
  - ABDOMINAL PAIN UPPER [None]
  - FATIGUE [None]
  - NAUSEA [None]
  - THERAPY REGIMEN CHANGED [None]
  - CONSTIPATION [None]
